FAERS Safety Report 12883767 (Version 4)
Quarter: 2017Q1

REPORT INFORMATION
  Report Type: Spontaneous
  Country: US (occurrence: US)
  Receive Date: 20161026
  Receipt Date: 20170130
  Transmission Date: 20170428
  Serious: No
  Sender: FDA-Public Use
  Company Number: US-TAIHO ONCOLOGY INC-EU-2016-02746

PATIENT
  Age: 59 Year
  Sex: Female

DRUGS (12)
  1. ACETYLSALICYLIC ACID [Concomitant]
     Active Substance: ASPIRIN
     Dates: start: 201609
  2. CITALOPRAM [Concomitant]
     Active Substance: CITALOPRAM HYDROBROMIDE
     Dosage: NI
  3. VITAMIN D3 [Concomitant]
     Active Substance: CHOLECALCIFEROL
     Dates: start: 201609
  4. AMOXICILLIN/CLAVULANATE POTASSIUM [Concomitant]
     Dates: start: 201609
  5. TYLENOL [Concomitant]
     Active Substance: ACETAMINOPHEN
     Dosage: NI
  6. METHYLPHENIDATE. [Concomitant]
     Active Substance: METHYLPHENIDATE
     Dates: start: 201609
  7. LONSURF [Suspect]
     Active Substance: TIPIRACIL HYDROCHLORIDE\TRIFLURIDINE
     Indication: COLON CANCER
     Route: 048
     Dates: start: 20160920
  8. MUGARD [Concomitant]
     Dates: start: 201609
  9. RANITIDINE. [Concomitant]
     Active Substance: RANITIDINE
     Dates: start: 201609
  10. ONDANSETRON [Concomitant]
     Active Substance: ONDANSETRON
     Dosage: NI
  11. QUETIAPINE. [Concomitant]
     Active Substance: QUETIAPINE
     Dosage: NI
  12. CLONAZEPAM. [Concomitant]
     Active Substance: CLONAZEPAM
     Dosage: NI

REACTIONS (5)
  - Hypoaesthesia [Unknown]
  - Erythema [Unknown]
  - Bronchitis [Recovering/Resolving]
  - Fatigue [Not Recovered/Not Resolved]
  - Nausea [Not Recovered/Not Resolved]

NARRATIVE: CASE EVENT DATE: 201609
